FAERS Safety Report 21440948 (Version 1)
Quarter: 2022Q4

REPORT INFORMATION
  Report Type: Spontaneous
  Country: DE (occurrence: DE)
  Receive Date: 20221011
  Receipt Date: 20221011
  Transmission Date: 20230112
  Serious: Yes (Death, Hospitalization)
  Sender: FDA-Public Use
  Company Number: DE-ANIPHARMA-2022-DE-000181

PATIENT
  Age: 80 Year
  Sex: Female

DRUGS (15)
  1. CANDESARTAN CILEXETIL [Suspect]
     Active Substance: CANDESARTAN CILEXETIL
     Indication: Product used for unknown indication
     Dosage: 32 MG, 0-0-0.5-0
     Route: 048
  2. INSULIN LISPRO [Concomitant]
     Active Substance: INSULIN LISPRO
     Dosage: 1 IU INT
     Route: 058
  3. POLYETHYLENE GLYCOLS [Concomitant]
     Active Substance: POLYETHYLENE GLYCOLS
     Dosage: 13.125 G, 1-0-0-0
     Route: 048
  4. INSULIN GLARGINE [Concomitant]
     Active Substance: INSULIN GLARGINE
     Dosage: 1 IU, AS REQUIRED
     Route: 058
  5. FENTANYL [Concomitant]
     Active Substance: FENTANYL
     Dosage: 0.025 MG/H, BY REGIMEN
  6. DIGOXIN [Concomitant]
     Active Substance: DIGOXIN
     Dosage: 0.25 MG, BY SCHEME
     Route: 048
  7. CHOLECALCIFEROL [Concomitant]
     Active Substance: CHOLECALCIFEROL
     Dosage: 1000 IE, 1-0-0-0
     Route: 048
  8. ALLOPURINOL [Suspect]
     Active Substance: ALLOPURINOL
     Dosage: 300 MG UNK
     Route: 048
  9. DALTEPARIN [Suspect]
     Active Substance: DALTEPARIN
     Dosage: 5000 IE, 1-0-1-0
     Route: 058
  10. TORSEMIDE [Suspect]
     Active Substance: TORSEMIDE
     Dosage: 20 MG UNK
     Route: 048
  11. ASPIRIN [Suspect]
     Active Substance: ASPIRIN
     Dosage: 100 MG DAILY
     Route: 048
  12. CHLORTHALIDONE [Suspect]
     Active Substance: CHLORTHALIDONE
     Dosage: 25 MG UNK
     Route: 048
  13. IRON [Concomitant]
     Active Substance: IRON
     Dosage: 50 MG DAILY
     Route: 048
  14. BISOPROLOL [Concomitant]
     Active Substance: BISOPROLOL
     Dosage: 5 MG, 0-0-1-0
     Route: 048
  15. INSULIN HUMAN [Concomitant]
     Active Substance: INSULIN HUMAN
     Dosage: 1 IU INT
     Route: 058

REACTIONS (5)
  - Cardiac failure [Unknown]
  - Anaemia [Fatal]
  - Dyspnoea [Unknown]
  - Acute kidney injury [Fatal]
  - Renal impairment [Unknown]
